FAERS Safety Report 25473532 (Version 1)
Quarter: 2025Q2

REPORT INFORMATION
  Report Type: Spontaneous
  Country: CN (occurrence: CN)
  Receive Date: 20250624
  Receipt Date: 20250624
  Transmission Date: 20250716
  Serious: Yes (Hospitalization)
  Sender: FRESENIUS KABI
  Company Number: CN-FreseniusKabi-FK202508588

PATIENT
  Age: 88 Year
  Sex: Male
  Weight: 53 kg

DRUGS (1)
  1. SMOFLIPID [Suspect]
     Active Substance: FISH OIL\MEDIUM-CHAIN TRIGLYCERIDES\OLIVE OIL\SOYBEAN OIL
     Indication: Lung neoplasm malignant
     Dosage: DOSAGE FORM: INJECTION
     Route: 041
     Dates: start: 20250606, end: 20250612

REACTIONS (2)
  - Dyspnoea [Recovering/Resolving]
  - Oxygen saturation decreased [Recovered/Resolved]

NARRATIVE: CASE EVENT DATE: 20250612
